FAERS Safety Report 8214302-4 (Version None)
Quarter: 2012Q1

REPORT INFORMATION
  Report Type: 
  Country: None (occurrence: None)
  Receive Date: 20120227
  Receipt Date: 20111209
  Transmission Date: 20120608
  Serious: No
  Sender: FDA-Public Use
  Company Number: 341794

PATIENT
  Age: 66 Year
  Sex: Male

DRUGS (2)
  1. METFORMIN HYDROCHLORIDE [Concomitant]
  2. VICTOZA [Suspect]
     Indication: TYPE 2 DIABETES MELLITUS
     Dosage: 1.8 MG, SUBCUTANEOUS
     Route: 058

REACTIONS (3)
  - BALANCE DISORDER [None]
  - DIZZINESS [None]
  - EAR DISCOMFORT [None]
